FAERS Safety Report 14152824 (Version 1)
Quarter: 2017Q4

REPORT INFORMATION
  Report Type: Spontaneous
  Country: US (occurrence: US)
  Receive Date: 20171102
  Receipt Date: 20171102
  Transmission Date: 20180321
  Serious: No
  Sender: FDA-Public Use
  Company Number: US-009507513-1710USA007493

PATIENT
  Sex: Female

DRUGS (2)
  1. LOTRISONE [Suspect]
     Active Substance: BETAMETHASONE DIPROPIONATE\CLOTRIMAZOLE
     Dosage: 1%/0.05% CREAM (10 MG/0.643MG, 45 MG),, ONCE
     Route: 061
     Dates: start: 20171010, end: 20171010
  2. PERMETHRIN. [Concomitant]
     Active Substance: PERMETHRIN
     Indication: ACARODERMATITIS
     Route: 061

REACTIONS (8)
  - Eye swelling [Unknown]
  - Accidental exposure to product [Unknown]
  - Expired product administered [Unknown]
  - Swelling face [Unknown]
  - Lacrimation increased [Unknown]
  - Erythema [Unknown]
  - Eye swelling [Unknown]
  - Wrong drug administered [Unknown]

NARRATIVE: CASE EVENT DATE: 20171010
